FAERS Safety Report 7093382-6 (Version None)
Quarter: 2010Q4

REPORT INFORMATION
  Report Type: 
  Country: None (occurrence: None)
  Receive Date: 20101110
  Receipt Date: 20101027
  Transmission Date: 20110411
  Serious: Yes (Other)
  Sender: FDA-Public Use
  Company Number: PHHY2010US72695

PATIENT
  Sex: Female

DRUGS (4)
  1. DIOVAN [Suspect]
     Dosage: 40 MG
  2. PROPRANOLOL [Concomitant]
  3. VERAPAMIL [Concomitant]
  4. ALPRAZOLAM [Concomitant]

REACTIONS (9)
  - BLOOD PRESSURE INCREASED [None]
  - CARDIAC FIBRILLATION [None]
  - DIZZINESS [None]
  - FEELING ABNORMAL [None]
  - HYPOTENSION [None]
  - INCORRECT DOSE ADMINISTERED [None]
  - RASH [None]
  - VISION BLURRED [None]
  - WRONG TECHNIQUE IN DRUG USAGE PROCESS [None]
